FAERS Safety Report 26218863 (Version 1)
Quarter: 2025Q4

REPORT INFORMATION
  Report Type: Report from Study
  Country: US (occurrence: US)
  Receive Date: 20251231
  Receipt Date: 20251231
  Transmission Date: 20260118
  Serious: Yes (Other)
  Sender: JAZZ
  Company Number: US-JAZZ PHARMACEUTICALS-2025-US-027768

PATIENT
  Age: 35 Year
  Sex: Female

DRUGS (6)
  1. XYWAV [Suspect]
     Active Substance: CALCIUM OXYBATE\MAGNESIUM OXYBATE\POTASSIUM OXYBATE\SODIUM OXYBATE
     Indication: Hypersomnia
     Dosage: 3.75 GRAM, BID
  2. CARAFATE [Concomitant]
     Active Substance: SUCRALFATE
     Indication: Product used for unknown indication
     Dosage: 10 MILLILITER, QID
     Dates: start: 20251217
  3. PANTOPRAZOLE SODIUM [Concomitant]
     Active Substance: PANTOPRAZOLE SODIUM
     Indication: Product used for unknown indication
     Dosage: 40 MILLIGRAM, BID
     Dates: start: 20251218
  4. DICYCLOMINE HYDROCHLORIDE [Concomitant]
     Active Substance: DICYCLOMINE HYDROCHLORIDE
     Indication: Product used for unknown indication
     Dosage: UNK
  5. DEXTROAMPHETAMINE [Concomitant]
     Active Substance: DEXTROAMPHETAMINE
     Indication: Product used for unknown indication
     Dosage: UNK
  6. AMPHETAMINE [Concomitant]
     Active Substance: AMPHETAMINE
     Indication: Product used for unknown indication
     Dosage: UNK

REACTIONS (5)
  - Surgery [Unknown]
  - Retching [Unknown]
  - Nausea [Unknown]
  - Vomiting [Unknown]
  - Treatment noncompliance [Unknown]

NARRATIVE: CASE EVENT DATE: 20251201
